FAERS Safety Report 8806682 (Version 2)
Quarter: 2013Q1

REPORT INFORMATION
  Report Type: Spontaneous
  Country: BR (occurrence: BR)
  Receive Date: 20120925
  Receipt Date: 20130312
  Transmission Date: 20140127
  Serious: No
  Sender: FDA-Public Use
  Company Number: PHHY2012BR082825

PATIENT
  Sex: Male

DRUGS (3)
  1. GALVUS MET [Suspect]
     Indication: DIABETES MELLITUS
     Dosage: 1 DF, (850/50 MG) A DAY
     Route: 048
  2. RASILEZ [Suspect]
     Indication: HYPERTENSION
     Dosage: 1 DF, (300 MG) AT NIGHT
     Route: 048
  3. AAS [Concomitant]
     Indication: BLOOD DISORDER
     Dosage: 1 DF, SPORADICALLY
     Route: 048

REACTIONS (1)
  - Hypertension [Not Recovered/Not Resolved]
